FAERS Safety Report 9309067 (Version 1)
Quarter: 2013Q2

REPORT INFORMATION
  Report Type: Spontaneous
  Country: CA (occurrence: CA)
  Receive Date: 20130525
  Receipt Date: 20130525
  Transmission Date: 20140414
  Serious: Yes (Death, Hospitalization)
  Sender: FDA-Public Use
  Company Number: CA-009507513-1305CAN014477

PATIENT
  Sex: Male

DRUGS (3)
  1. PEGETRON [Suspect]
     Indication: HEPATITIS C
     Dosage: 150 MICROGRAM, UNK
     Dates: start: 20121101
  2. PEGETRON [Suspect]
     Dosage: 1400 MG, UNK
     Dates: start: 20121101
  3. VICTRELIS [Suspect]
     Indication: HEPATITIS C
     Dosage: 2400 MG, UNK
     Dates: start: 20121101

REACTIONS (1)
  - Death [Fatal]
